FAERS Safety Report 15666696 (Version 1)
Quarter: 2018Q4

REPORT INFORMATION
  Report Type: Spontaneous
  Country: US (occurrence: US)
  Receive Date: 20181128
  Receipt Date: 20181128
  Transmission Date: 20190205
  Serious: No
  Sender: FDA-Public Use
  Company Number: US-ROCHE-2145664

PATIENT
  Sex: Female

DRUGS (2)
  1. OCREVUS [Suspect]
     Active Substance: OCRELIZUMAB
     Dosage: 600 MG IV INFUSION EVERY SIX MONTHS ;ONGOING: UNKNOWN
     Route: 042
     Dates: start: 20171211
  2. OCREVUS [Suspect]
     Active Substance: OCRELIZUMAB
     Indication: SECONDARY PROGRESSIVE MULTIPLE SCLEROSIS
     Dosage: FIRST HALF DOSE ;ONGOING: NO
     Route: 042
     Dates: start: 201705

REACTIONS (5)
  - Intentional product use issue [Unknown]
  - Influenza like illness [Unknown]
  - Malaise [Unknown]
  - Immunodeficiency [Unknown]
  - Off label use [Unknown]
